FAERS Safety Report 5679859-6 (Version None)
Quarter: 2008Q1

REPORT INFORMATION
  Report Type: 
  Country: None (occurrence: None)
  Receive Date: 20080324
  Receipt Date: 20080310
  Transmission Date: 20080703
  Serious: Yes (Hospitalization)
  Sender: FDA-Public Use
  Company Number: B0512503A

PATIENT
  Age: 84 Year
  Sex: Female

DRUGS (5)
  1. PAROXETINE HCL [Suspect]
     Indication: DEPRESSION
     Dosage: 10 MG / PER DAY
  2. VERAPAMIL [Concomitant]
  3. TICLOPIDINE HCL [Concomitant]
  4. SPIRONOLACTONE [Concomitant]
  5. NIMODIPINE [Concomitant]

REACTIONS (7)
  - BLOOD SODIUM DECREASED [None]
  - HEPATIC ENCEPHALOPATHY [None]
  - HEPATIC FAILURE [None]
  - HEPATITIS ACUTE [None]
  - HYPERAMMONAEMIA [None]
  - RENAL FAILURE [None]
  - WHITE BLOOD CELL COUNT INCREASED [None]
